FAERS Safety Report 12461732 (Version 2)
Quarter: 2016Q3

REPORT INFORMATION
  Report Type: Spontaneous
  Country: US (occurrence: US)
  Receive Date: 20160613
  Receipt Date: 20160701
  Transmission Date: 20161109
  Serious: No
  Sender: FDA-Public Use
  Company Number: US-BAYER-2016-113205

PATIENT
  Age: 87 Year
  Sex: Male
  Weight: 29.47 kg

DRUGS (2)
  1. MIRALAX [Suspect]
     Active Substance: POLYETHYLENE GLYCOL 3350
     Indication: BOWEL MOVEMENT IRREGULARITY
     Route: 048
  2. FINASTERIDE. [Concomitant]
     Active Substance: FINASTERIDE

REACTIONS (7)
  - Underdose [None]
  - Faeces soft [None]
  - Constipation [None]
  - Product use issue [None]
  - Faeces soft [Recovered/Resolved]
  - Diarrhoea [Not Recovered/Not Resolved]
  - Diarrhoea [None]

NARRATIVE: CASE EVENT DATE: 20160607
